FAERS Safety Report 10070838 (Version 1)
Quarter: 2014Q2

REPORT INFORMATION
  Report Type: Report from Study
  Country: CO (occurrence: CO)
  Receive Date: 20140410
  Receipt Date: 20140410
  Transmission Date: 20141212
  Serious: Yes (Life-Threatening, Hospitalization)
  Sender: FDA-Public Use
  Company Number: CO-BRISTOL-MYERS SQUIBB COMPANY-20592937

PATIENT
  Sex: Female

DRUGS (1)
  1. ORENCIA FOR INJ 250 MG/VIAL [Suspect]
     Route: 042

REACTIONS (1)
  - Neoplasm malignant [Unknown]
